FAERS Safety Report 16158317 (Version 1)
Quarter: 2019Q2

REPORT INFORMATION
  Report Type: Spontaneous
  Country: US (occurrence: US)
  Receive Date: 20190301
  Receipt Date: 20190301
  Transmission Date: 20190711
  Serious: Yes (Other)
  Sender: FDA-Public Use
  Company Number: None

PATIENT
  Age: 12 Year
  Sex: Female

DRUGS (5)
  1. METHYLPHENIDATE 54MG [Suspect]
     Active Substance: METHYLPHENIDATE
     Indication: DISRUPTIVE MOOD DYSREGULATION DISORDER
     Dosage: ?          QUANTITY:54 MG MILLIGRAM(S);?
     Route: 048
     Dates: start: 2017, end: 20190228
  2. CONCERTA [Concomitant]
     Active Substance: METHYLPHENIDATE HYDROCHLORIDE
  3. LAMICTAL [Concomitant]
     Active Substance: LAMOTRIGINE
  4. METHYLPHENIDATE 54MG [Suspect]
     Active Substance: METHYLPHENIDATE
     Indication: ATTENTION DEFICIT/HYPERACTIVITY DISORDER
     Dosage: ?          QUANTITY:54 MG MILLIGRAM(S);?
     Route: 048
     Dates: start: 2017, end: 20190228
  5. DIASTAT [Concomitant]
     Active Substance: DIAZEPAM

REACTIONS (3)
  - Product substitution issue [None]
  - Drug ineffective [None]
  - Dermatillomania [None]

NARRATIVE: CASE EVENT DATE: 20190228
